FAERS Safety Report 6946587-6 (Version None)
Quarter: 2010Q3

REPORT INFORMATION
  Report Type: 
  Country: None (occurrence: None)
  Receive Date: 20100824
  Receipt Date: 20100806
  Transmission Date: 20110219
  Serious: Yes (Other)
  Sender: FDA-Public Use
  Company Number: AUR-APL-2010-02085

PATIENT
  Age: 51 Year
  Sex: Female
  Weight: 48 kg

DRUGS (14)
  1. TOPIRAMATE [Suspect]
     Indication: CONVULSION
     Dosage: 200MG, BID,
  2. CHANTIX [Suspect]
     Indication: SMOKING CESSATION THERAPY
     Dosage: 0.5MG, DAILY, ORAL
     Route: 048
     Dates: start: 20070101
  3. CHANTIX [Suspect]
     Indication: SMOKING CESSATION THERAPY
     Dosage: 1MG, BID, ORAL
     Route: 048
     Dates: start: 20100101, end: 20100601
  4. CHANTIX [Suspect]
     Indication: SMOKING CESSATION THERAPY
     Dosage: 0.5MG, QD,
     Dates: start: 20100519, end: 20100601
  5. ASPIRIN [Concomitant]
  6. SINGULAIR [Concomitant]
  7. PREMARIN [Concomitant]
  8. MIRAPEX [Concomitant]
  9. NABUMETONE [Concomitant]
  10. CARISOPRODOL [Concomitant]
  11. XOPENEX [Concomitant]
  12. LORAZEPAM [Concomitant]
  13. PROPOXYPHENE HCL AND ACETAMINOPHEN [Concomitant]
  14. PROMETHAZINE HCL [Concomitant]

REACTIONS (20)
  - AMAUROSIS FUGAX [None]
  - ANXIETY DISORDER [None]
  - AORTIC STENOSIS [None]
  - BRONCHITIS BACTERIAL [None]
  - BRONCHITIS CHRONIC [None]
  - CHEST PAIN [None]
  - COLONIC STENOSIS [None]
  - CONVULSION [None]
  - CRYING [None]
  - DEPRESSION [None]
  - DRUG EFFECT DECREASED [None]
  - FIBROMYALGIA [None]
  - NAUSEA [None]
  - NICOTINE DEPENDENCE [None]
  - OSTEOPENIA [None]
  - PALPITATIONS [None]
  - RESTLESS LEGS SYNDROME [None]
  - SUICIDAL IDEATION [None]
  - TREMOR [None]
  - VOMITING [None]
